FAERS Safety Report 10568543 (Version 1)
Quarter: 2014Q4

REPORT INFORMATION
  Report Type: Spontaneous
  Country: FR (occurrence: FR)
  Receive Date: 20141106
  Receipt Date: 20141106
  Transmission Date: 20150529
  Serious: Yes (Hospitalization)
  Sender: FDA-Public Use
  Company Number: FR-SA-2014SA149901

PATIENT
  Age: 84 Year
  Sex: Male

DRUGS (5)
  1. LOVENOX [Suspect]
     Active Substance: ENOXAPARIN SODIUM
     Dosage: STRENGTH: 8000 IU ANTI-XA/0.8 ML
     Route: 058
     Dates: start: 20140806, end: 20140807
  2. PENICILLIN G [Concomitant]
     Active Substance: PENICILLIN G
     Route: 042
     Dates: start: 201408
  3. KARDEGIC [Suspect]
     Active Substance: ASPIRIN LYSINE
     Route: 048
     Dates: end: 20140807
  4. LOVENOX [Suspect]
     Active Substance: ENOXAPARIN SODIUM
     Dosage: STRENGTH:4000 IU ANTI-XA/0.4 ML
     Route: 058
     Dates: start: 20140805, end: 20140806
  5. TOBRAMYCIN. [Concomitant]
     Active Substance: TOBRAMYCIN
     Dates: start: 201408, end: 201408

REACTIONS (2)
  - Condition aggravated [Recovered/Resolved]
  - Gastrointestinal haemorrhage [Recovered/Resolved]

NARRATIVE: CASE EVENT DATE: 20140807
